FAERS Safety Report 23076864 (Version 1)
Quarter: 2023Q4

REPORT INFORMATION
  Report Type: Report from Study
  Country: US (occurrence: US)
  Receive Date: 20231018
  Receipt Date: 20231018
  Transmission Date: 20240110
  Serious: Yes (Hospitalization, Disabling)
  Sender: FDA-Public Use
  Company Number: US-ABBVIE-5306234

PATIENT
  Age: 64 Year
  Sex: Female

DRUGS (3)
  1. HUMIRA [Suspect]
     Active Substance: ADALIMUMAB
     Indication: Rheumatoid arthritis
     Dosage: CITRATE FREE?FORM STRENGTH : 40 MG
     Route: 058
     Dates: start: 20210820
  2. HUMIRA [Suspect]
     Active Substance: ADALIMUMAB
     Route: 058
  3. HUMIRA [Suspect]
     Active Substance: ADALIMUMAB
     Route: 058

REACTIONS (7)
  - Pneumonia [Unknown]
  - Impaired work ability [Unknown]
  - Incorrect dose administered [Unknown]
  - Pneumonia [Unknown]
  - Lung disorder [Not Recovered/Not Resolved]
  - Sciatica [Unknown]
  - Disability [Unknown]

NARRATIVE: CASE EVENT DATE: 20230401
